FAERS Safety Report 14749572 (Version 1)
Quarter: 2018Q2

REPORT INFORMATION
  Report Type: Spontaneous
  Country: US (occurrence: US)
  Receive Date: 20180411
  Receipt Date: 20180411
  Transmission Date: 20180711
  Serious: Yes (Other)
  Sender: FDA-Public Use
  Company Number: US-009507513-1804USA003161

PATIENT
  Sex: Female

DRUGS (1)
  1. NEXPLANON [Suspect]
     Active Substance: ETONOGESTREL
     Dosage: 68 MG, ONCE
     Route: 059
     Dates: start: 20170422, end: 20180404

REACTIONS (3)
  - Headache [Unknown]
  - Urticaria [Unknown]
  - Metrorrhagia [Unknown]
